FAERS Safety Report 15734144 (Version 1)
Quarter: 2018Q4

REPORT INFORMATION
  Report Type: Spontaneous
  Country: US (occurrence: US)
  Receive Date: 20181217
  Receipt Date: 20181217
  Transmission Date: 20190205
  Serious: No
  Sender: FDA-Public Use
  Company Number: None

PATIENT
  Age: 31 Year
  Sex: Female
  Weight: 99 kg

DRUGS (6)
  1. FIORICET [Concomitant]
     Active Substance: ACETAMINOPHEN\BUTALBITAL\CAFFEINE
  2. ADVIL [Concomitant]
     Active Substance: IBUPROFEN
  3. AIMOVIG [Suspect]
     Active Substance: ERENUMAB-AOOE
     Indication: MIGRAINE
     Dosage: ?          QUANTITY:1 INJECTION(S);OTHER FREQUENCY:ONCE A MONT;?
     Route: 030
     Dates: start: 20181022
  4. NUVARING [Concomitant]
     Active Substance: ETHINYL ESTRADIOL\ETONOGESTREL
  5. EXCEDRIN [Concomitant]
     Active Substance: ACETAMINOPHEN\ASPIRIN\CAFFEINE
  6. AIMOVIG [Concomitant]
     Active Substance: ERENUMAB-AOOE

REACTIONS (6)
  - Drug ineffective [None]
  - Nausea [None]
  - Fatigue [None]
  - Myalgia [None]
  - Dyspnoea [None]
  - Metrorrhagia [None]

NARRATIVE: CASE EVENT DATE: 20181207
